FAERS Safety Report 9222593 (Version 2)
Quarter: 2013Q3

REPORT INFORMATION
  Report Type: Spontaneous
  Country: US (occurrence: None)
  Receive Date: 20120914
  Receipt Date: 20130916
  Transmission Date: 20140515
  Serious: Yes (Other)
  Sender: FDA-Public Use
  Company Number: JPI-P-021407

PATIENT
  Age: 9 Year
  Sex: Female

DRUGS (4)
  1. XYREM [Suspect]
     Indication: CATAPLEXY
     Route: 048
     Dates: start: 201109
  2. METHYLPHENIDATE [Concomitant]
  3. SERTRALINE [Concomitant]
  4. ARMODAFINIL [Concomitant]

REACTIONS (6)
  - Weight decreased [None]
  - Muscle tone disorder [None]
  - Cyanosis [None]
  - Decreased appetite [None]
  - Nasal congestion [None]
  - Rhinorrhoea [None]
